FAERS Safety Report 16845238 (Version 6)
Quarter: 2019Q4

REPORT INFORMATION
  Report Type: Report from Study
  Country: JP (occurrence: JP)
  Receive Date: 20190924
  Receipt Date: 20191205
  Transmission Date: 20200122
  Serious: Yes (Hospitalization, Other)
  Sender: FDA-Public Use
  Company Number: JP-BRISTOL-MYERS SQUIBB COMPANY-BMS-2019-088493

PATIENT
  Age: 16 Year
  Sex: Female
  Weight: 59.8 kg

DRUGS (6)
  1. CALONAL [Concomitant]
     Active Substance: ACETAMINOPHEN
     Indication: PAIN
     Dosage: 500 MILLIGRAM
     Route: 048
  2. LORAZEPAM TOWA [Concomitant]
     Indication: ANXIETY
     Dosage: 0.5 MILLIGRAM
     Route: 048
     Dates: start: 20191023
  3. NIVOLUMAB [Suspect]
     Active Substance: NIVOLUMAB
     Indication: ALVEOLAR SOFT PART SARCOMA
     Dosage: 180 MILLIGRAM
     Route: 041
     Dates: start: 20190712, end: 20190823
  4. LOXOPROFEN NA [Concomitant]
     Active Substance: LOXOPROFEN SODIUM
     Indication: PAIN
     Dosage: UNK
     Route: 048
  5. MAGMITT [Concomitant]
     Active Substance: MAGNESIUM OXIDE
     Indication: CONSTIPATION
     Dosage: 330 MILLIGRAM
     Route: 048
  6. LYRICA [Concomitant]
     Active Substance: PREGABALIN
     Indication: PAIN
     Dosage: 75 MILLIGRAM
     Route: 048

REACTIONS (2)
  - Embolism [Recovering/Resolving]
  - Gingivitis [Recovered/Resolved]

NARRATIVE: CASE EVENT DATE: 20190904
